FAERS Safety Report 16008213 (Version 2)
Quarter: 2019Q1

REPORT INFORMATION
  Report Type: Spontaneous
  Country: US (occurrence: US)
  Receive Date: 20190226
  Receipt Date: 20190301
  Transmission Date: 20190418
  Serious: Yes (Other)
  Sender: FDA-Public Use
  Company Number: US-ASTRAZENECA-2018SF34675

PATIENT
  Sex: Male

DRUGS (18)
  1. GABAPENTIN. [Concomitant]
     Active Substance: GABAPENTIN
     Dates: start: 20160720
  2. PROPRANOLOL [Concomitant]
     Active Substance: PROPRANOLOL HYDROCHLORIDE
     Dates: start: 20151110
  3. ATORVASTATIN [Concomitant]
     Active Substance: ATORVASTATIN
     Dates: start: 20160721
  4. METFORMIN [Concomitant]
     Active Substance: METFORMIN HYDROCHLORIDE
     Dates: start: 20160830
  5. PRILOSEC OTC [Suspect]
     Active Substance: OMEPRAZOLE MAGNESIUM
     Route: 048
  6. LOSARTAN. [Concomitant]
     Active Substance: LOSARTAN
  7. NEXIUM 24HR [Suspect]
     Active Substance: ESOMEPRAZOLE MAGNESIUM
     Route: 048
  8. INSULIN HUMAN [Concomitant]
     Active Substance: INSULIN HUMAN
     Dates: start: 20160816
  9. OLANZAPINE. [Concomitant]
     Active Substance: OLANZAPINE
     Dates: start: 20160105
  10. SILDENAFIL. [Concomitant]
     Active Substance: SILDENAFIL
     Dates: start: 20160418
  11. TRAMADOL. [Concomitant]
     Active Substance: TRAMADOL
     Dates: start: 20160817
  12. NEXIUM 24HR [Suspect]
     Active Substance: ESOMEPRAZOLE MAGNESIUM
     Route: 048
     Dates: start: 20040424, end: 20170315
  13. LIDOCAINE. [Concomitant]
     Active Substance: LIDOCAINE
     Dates: start: 20160526
  14. VITAMIN E [Concomitant]
     Active Substance: .ALPHA.-TOCOPHEROL
     Dates: start: 20160721
  15. AMLODIPINE [Concomitant]
     Active Substance: AMLODIPINE BESYLATE
  16. PREVACID [Suspect]
     Active Substance: LANSOPRAZOLE
     Route: 065
  17. ASPIRIN. [Concomitant]
     Active Substance: ASPIRIN
     Dates: start: 20160721
  18. LORATADINE. [Concomitant]
     Active Substance: LORATADINE
     Dates: start: 20160720

REACTIONS (4)
  - Renal injury [Unknown]
  - Acute kidney injury [Unknown]
  - Chronic kidney disease [Unknown]
  - Renal failure [Unknown]
